FAERS Safety Report 5527533-9 (Version None)
Quarter: 2007Q4

REPORT INFORMATION
  Report Type: 
  Country: None (occurrence: None)
  Receive Date: 20071121
  Receipt Date: 20071115
  Transmission Date: 20080405
  Serious: Yes (Other)
  Sender: FDA-Public Use
  Company Number: 163-20785-07101124

PATIENT
  Age: 46 Year
  Sex: Female

DRUGS (3)
  1. THALOMID [Suspect]
     Indication: AMYLOIDOSIS
     Dosage: 100 MG, QD, ORAL
     Route: 048
     Dates: start: 20070501
  2. THALOMID [Suspect]
     Indication: AMYLOIDOSIS
     Dosage: 100 MG, QD, ORAL
     Route: 048
     Dates: start: 20070501
  3. THALOMID [Suspect]
     Indication: AMYLOIDOSIS
     Dosage: 100 MG, QD, ORAL
     Route: 048
     Dates: start: 20071115

REACTIONS (1)
  - URINE HUMAN CHORIONIC GONADOTROPIN INCREASED [None]
